FAERS Safety Report 11429772 (Version 1)
Quarter: 2015Q3

REPORT INFORMATION
  Report Type: Spontaneous
  Country: US (occurrence: US)
  Receive Date: 20150828
  Receipt Date: 20150828
  Transmission Date: 20151125
  Serious: No
  Sender: FDA-Public Use
  Company Number: PHEH2014US020597

PATIENT
  Sex: Male

DRUGS (1)
  1. RECLAST [Suspect]
     Active Substance: ZOLEDRONIC ACID
     Indication: PRODUCT USED FOR UNKNOWN INDICATION
     Route: 042

REACTIONS (8)
  - Groin pain [Unknown]
  - Arthralgia [Unknown]
  - Gait disturbance [Unknown]
  - Feeling hot [Unknown]
  - Nausea [Unknown]
  - Headache [Unknown]
  - Weight bearing difficulty [Unknown]
  - Pyrexia [Recovered/Resolved]
